FAERS Safety Report 7887943-1 (Version None)
Quarter: 2011Q4

REPORT INFORMATION
  Report Type: 
  Country: None (occurrence: None)
  Receive Date: 20111103
  Receipt Date: 20111027
  Transmission Date: 20120403
  Serious: Yes (Other)
  Sender: FDA-Public Use
  Company Number: US-NAPPMUNDI-USA-2011-0076993

PATIENT
  Sex: Female

DRUGS (2)
  1. BUTRANS [Suspect]
     Dosage: UNK
     Dates: start: 20111004
  2. BUTRANS [Suspect]
     Indication: PAIN
     Dosage: 5 MCG/HR, UNK
     Route: 062
     Dates: start: 20110923, end: 20111004

REACTIONS (10)
  - PAIN [None]
  - ABDOMINAL PAIN [None]
  - ABDOMINAL DISTENSION [None]
  - FAECAL VOLUME DECREASED [None]
  - ERUCTATION [None]
  - INTESTINAL OBSTRUCTION [None]
  - ILEUS [None]
  - VOMITING [None]
  - GASTROINTESTINAL HYPOMOTILITY [None]
  - ABDOMINAL PAIN UPPER [None]
